FAERS Safety Report 25791174 (Version 1)
Quarter: 2025Q3

REPORT INFORMATION
  Report Type: Spontaneous
  Country: US (occurrence: None)
  Receive Date: 20250910
  Receipt Date: 20250910
  Transmission Date: 20251021
  Serious: No
  Sender: FDA-CTU
  Company Number: None

PATIENT
  Age: 22 Year
  Sex: Male
  Weight: 85.5 kg

DRUGS (2)
  1. LITFULO [Suspect]
     Active Substance: RITLECITINIB TOSYLATE
     Indication: Alopecia areata
     Dosage: FREQUENCY : DAILY;?
     Route: 048
     Dates: start: 20250820, end: 20250909
  2. Minoxidil 2.5mg tablet [Concomitant]

REACTIONS (2)
  - White blood cell count decreased [None]
  - Therapy interrupted [None]

NARRATIVE: CASE EVENT DATE: 20250910
